FAERS Safety Report 9066695 (Version 1)
Quarter: 2013Q1

REPORT INFORMATION
  Report Type: Report from Study
  Country: US (occurrence: US)
  Receive Date: 20130131
  Receipt Date: 20130131
  Transmission Date: 20140127
  Serious: No
  Sender: FDA-Public Use
  Company Number: US-ABBOTT-12P-163-1010309-00

PATIENT
  Age: 38 Year
  Sex: Female

DRUGS (5)
  1. HUMIRA [Suspect]
     Indication: COLITIS ULCERATIVE
     Dosage: 160MG LOADING DOSE
     Dates: start: 20121116, end: 20121116
  2. HUMIRA [Suspect]
  3. APRISO [Concomitant]
     Indication: PRODUCT USED FOR UNKNOWN INDICATION
     Dosage: 0.375MG DAILY
  4. BIFERA [Concomitant]
     Indication: PRODUCT USED FOR UNKNOWN INDICATION
  5. INHALER [Concomitant]
     Indication: PRODUCT USED FOR UNKNOWN INDICATION

REACTIONS (4)
  - Pyrexia [Recovered/Resolved]
  - Muscle tightness [Not Recovered/Not Resolved]
  - Tremor [Recovered/Resolved]
  - Anxiety [Recovered/Resolved]
